FAERS Safety Report 6508183-4 (Version None)
Quarter: 2009Q4

REPORT INFORMATION
  Report Type: 
  Country: None (occurrence: None)
  Receive Date: 20091221
  Receipt Date: 20090406
  Transmission Date: 20100525
  Serious: No
  Sender: FDA-Public Use
  Company Number: US-ASTRAZENECA-2008UW27661

PATIENT
  Age: 40 Year
  Sex: Male
  Weight: 79.4 kg

DRUGS (2)
  1. CRESTOR [Suspect]
     Route: 048
     Dates: start: 20081201, end: 20090401
  2. LISINOPRIL [Concomitant]

REACTIONS (2)
  - MYALGIA [None]
  - POLLAKIURIA [None]
